FAERS Safety Report 15889267 (Version 1)
Quarter: 2019Q1

REPORT INFORMATION
  Report Type: Not Available
  Country: US (occurrence: US)
  Receive Date: 20190130
  Receipt Date: 20190130
  Transmission Date: 20190417
  Serious: No
  Sender: FDA-Public Use
  Company Number: US-NEUROCRINE BIOSCIENCES INC.-2019NBI00220

PATIENT
  Sex: Female

DRUGS (8)
  1. MVI [Concomitant]
     Active Substance: VITAMINS
  2. TORSEMIDE. [Concomitant]
     Active Substance: TORSEMIDE
  3. INGREZZA [Suspect]
     Active Substance: VALBENAZINE
     Indication: TARDIVE DYSKINESIA
     Route: 048
  4. ASPIRIN. [Concomitant]
     Active Substance: ASPIRIN
  5. AVAPRO [Concomitant]
     Active Substance: IRBESARTAN
  6. METOPROLOL. [Concomitant]
     Active Substance: METOPROLOL
  7. CALCIUM WITH VIT D [Concomitant]
  8. FISH OIL [Concomitant]
     Active Substance: FISH OIL

REACTIONS (2)
  - Drooling [Unknown]
  - Off label use [Unknown]
